FAERS Safety Report 5239250-3 (Version None)
Quarter: 2007Q1

REPORT INFORMATION
  Report Type: 
  Country: None (occurrence: None)
  Receive Date: 20061208
  Receipt Date: 20050830
  Transmission Date: 20070707
  Serious: Yes (Other)
  Sender: FDA-Public Use
  Company Number: 2005UW12883

PATIENT
  Age: 72 Year
  Sex: Male

DRUGS (1)
  1. CRESTOR [Suspect]
     Indication: BLOOD CHOLESTEROL INCREASED
     Dosage: 5 MG PO
     Route: 048
     Dates: start: 20050101

REACTIONS (3)
  - GAIT DISTURBANCE [None]
  - MOVEMENT DISORDER [None]
  - MYALGIA [None]
